FAERS Safety Report 21168441 (Version 1)
Quarter: 2022Q3

REPORT INFORMATION
  Report Type: Spontaneous
  Country: US (occurrence: US)
  Receive Date: 20220803
  Receipt Date: 20220803
  Transmission Date: 20221027
  Serious: No
  Sender: FDA-Public Use
  Company Number: US-ELI_LILLY_AND_COMPANY-US202207007208

PATIENT
  Age: 64 Year
  Sex: Female

DRUGS (1)
  1. BEBTELOVIMAB [Suspect]
     Active Substance: BEBTELOVIMAB
     Indication: COVID-19
     Dosage: UNK, SINGLE
     Route: 065
     Dates: start: 20220714, end: 20220714

REACTIONS (4)
  - Jaw disorder [Unknown]
  - Eating disorder [Unknown]
  - Speech disorder [Unknown]
  - Pain in jaw [Unknown]

NARRATIVE: CASE EVENT DATE: 20220714
